FAERS Safety Report 8432395-6 (Version None)
Quarter: 2012Q2

REPORT INFORMATION
  Report Type: 
  Country: None (occurrence: None)
  Receive Date: 20120613
  Receipt Date: 20120604
  Transmission Date: 20120825
  Serious: No
  Sender: FDA-Public Use
  Company Number: US-B.I. PHARMACEUTICALS,INC./RIDGEFIELD-2012-BP-12933BP

PATIENT
  Age: 76 Year
  Sex: Male

DRUGS (8)
  1. PROBIOTIC [Concomitant]
     Indication: SUPPLEMENTATION THERAPY
     Route: 048
     Dates: start: 20110101
  2. PRADAXA [Suspect]
     Indication: ATRIAL FIBRILLATION
     Dosage: 300 MG
     Route: 048
     Dates: start: 20120201
  3. TIMOLOL MALEATE [Concomitant]
     Indication: GLAUCOMA
     Dates: start: 20020101
  4. TOPROL-XL [Concomitant]
     Indication: ATRIAL FIBRILLATION
     Dosage: 50 MG
     Route: 048
     Dates: start: 20120201
  5. MULTI-VITAMIN [Concomitant]
     Indication: SUPPLEMENTATION THERAPY
     Route: 048
     Dates: start: 20020101
  6. MOVE FREE TABLETS [Concomitant]
     Indication: SUPPLEMENTATION THERAPY
     Route: 048
     Dates: start: 20080101
  7. IOPIDINE DROPS 0.5% [Concomitant]
     Indication: GLAUCOMA
     Dates: start: 20020101
  8. PROSTATE MIRACLE [Concomitant]
     Indication: PROSTATOMEGALY
     Route: 048
     Dates: start: 20090101

REACTIONS (4)
  - VOMITING [None]
  - VERTIGO [None]
  - NAUSEA [None]
  - HYPERHIDROSIS [None]
